FAERS Safety Report 9312184 (Version 2)
Quarter: 2013Q2

REPORT INFORMATION
  Report Type: Spontaneous
  Country: US (occurrence: US)
  Receive Date: 20130528
  Receipt Date: 20130621
  Transmission Date: 20140414
  Serious: Yes (Hospitalization, Other)
  Sender: FDA-Public Use
  Company Number: US-PFIZER INC-2013161344

PATIENT
  Age: 72 Year
  Sex: Male

DRUGS (2)
  1. SUTENT [Suspect]
     Indication: RENAL CANCER
     Dosage: 12.5 MG, UNK
     Dates: start: 20120106
  2. SUTENT [Suspect]
     Dosage: 50 MG, CYCLIC (DAILY 2 WK ON/1 OFF)
     Route: 048

REACTIONS (3)
  - Back pain [Unknown]
  - Urinary tract infection [Unknown]
  - Tooth disorder [Unknown]
